FAERS Safety Report 22062557 (Version 1)
Quarter: 2023Q1

REPORT INFORMATION
  Report Type: Spontaneous
  Country: GB (occurrence: GB)
  Receive Date: 20230305
  Receipt Date: 20230305
  Transmission Date: 20230417
  Serious: Yes (Hospitalization)
  Sender: FDA-Public Use
  Company Number: GB-ENDO PHARMACEUTICALS INC-2023-001097

PATIENT
  Age: 24 Year
  Sex: Female

DRUGS (1)
  1. AVEED [Suspect]
     Active Substance: TESTOSTERONE UNDECANOATE
     Indication: Gender dysphoria
     Dosage: UNK UNKNOWN, UNKNOWN (INJECTIONS EVERY 10-12 WEEKS)
     Route: 051

REACTIONS (3)
  - Mental disorder [Unknown]
  - Contraindicated product administered [Not Recovered/Not Resolved]
  - Off label use [Not Recovered/Not Resolved]
